FAERS Safety Report 8913621 (Version 1)
Quarter: 2012Q4

REPORT INFORMATION
  Report Type: 
  Country: TH (occurrence: TH)
  Receive Date: 20121119
  Receipt Date: 20121119
  Transmission Date: 20130627
  Serious: Yes (Other)
  Sender: FDA-Public Use
  Company Number: TH-JNJFOC-20121105900

PATIENT

DRUGS (6)
  1. DOXORUBICIN [Suspect]
     Indication: NEPHROBLASTOMA
     Dosage: 50 to 400mg/m2
     Route: 042
  2. DOXORUBICIN [Suspect]
     Indication: EWING^S SARCOMA
     Dosage: 50 to 400mg/m2
     Route: 042
  3. DOXORUBICIN [Suspect]
     Indication: BONE SARCOMA
     Dosage: 50 to 400mg/m2
     Route: 042
  4. DOXORUBICIN [Suspect]
     Indication: NEUROBLASTOMA
     Dosage: 50 to 400mg/m2
     Route: 042
  5. DOXORUBICIN [Suspect]
     Indication: LYMPHOMA
     Dosage: 50 to 400mg/m2
     Route: 042
  6. DOXORUBICIN [Suspect]
     Indication: LEUKAEMIA
     Dosage: 50 to 400mg/m2
     Route: 042

REACTIONS (3)
  - Cardiotoxicity [Unknown]
  - Left ventricular dysfunction [Unknown]
  - N-terminal prohormone brain natriuretic peptide increased [Unknown]
